FAERS Safety Report 4748470-3 (Version None)
Quarter: 2005Q3

REPORT INFORMATION
  Report Type: 
  Country: None (occurrence: None)
  Receive Date: 20050818
  Receipt Date: 20050803
  Transmission Date: 20060218
  Serious: Yes (Hospitalization)
  Sender: FDA-Public Use
  Company Number: 2005SP000438

PATIENT
  Age: 36 Year
  Sex: Male
  Weight: 98.1 kg

DRUGS (9)
  1. LEVALBUTEROL MDI-HFA (TARTRATE)   (90 UG) [Suspect]
     Indication: ASTHMA
     Dosage: 90 UG;QID;INHALATION
     Dates: start: 20040602
  2. NIASPAN [Concomitant]
  3. ALBUTEROL [Concomitant]
  4. DECADRON-LA [Concomitant]
  5. BICILIN LA [Concomitant]
  6. SALINE EYE DROPS [Concomitant]
  7. NIASPAN [Concomitant]
  8. CLARINEX [Concomitant]
  9. COLACE [Concomitant]

REACTIONS (3)
  - ARTERIOSPASM CORONARY [None]
  - CHOLELITHIASIS [None]
  - OESOPHAGEAL SPASM [None]
